FAERS Safety Report 6153654-6 (Version None)
Quarter: 2009Q2

REPORT INFORMATION
  Report Type: 
  Country: None (occurrence: None)
  Receive Date: 20090409
  Receipt Date: 20090401
  Transmission Date: 20091009
  Serious: Yes (Hospitalization, Other)
  Sender: FDA-Public Use
  Company Number: 2008SP025867

PATIENT
  Age: 65 Year
  Sex: Female

DRUGS (8)
  1. INTRON A [Suspect]
     Indication: MALIGNANT MELANOMA
     Dosage: 36 MIU; IV, 30 MIU; IV, 15 MIU; IV
     Route: 042
     Dates: end: 20081212
  2. INTRON A [Suspect]
     Indication: MALIGNANT MELANOMA
     Dosage: 36 MIU; IV, 30 MIU; IV, 15 MIU; IV
     Route: 042
     Dates: start: 20090112, end: 20090202
  3. INTRON A [Suspect]
     Indication: MALIGNANT MELANOMA
     Dosage: 36 MIU; IV, 30 MIU; IV, 15 MIU; IV
     Route: 042
     Dates: start: 20081117
  4. LIPITOR [Concomitant]
  5. CELEBREX [Concomitant]
  6. PREMARIN [Concomitant]
  7. PROVERA [Concomitant]
  8. LOSEC [Concomitant]

REACTIONS (13)
  - DRUG LEVEL DECREASED [None]
  - DYSGEUSIA [None]
  - FATIGUE [None]
  - GAIT DISTURBANCE [None]
  - HEADACHE [None]
  - HERPES ZOSTER [None]
  - KIDNEY INFECTION [None]
  - MUSCULAR WEAKNESS [None]
  - MYALGIA [None]
  - NAUSEA [None]
  - PAIN IN EXTREMITY [None]
  - PANCREATIC DISORDER [None]
  - WHITE BLOOD CELL COUNT DECREASED [None]
